FAERS Safety Report 9670188 (Version 1)
Quarter: 2013Q4

REPORT INFORMATION
  Report Type: Spontaneous
  Country: US (occurrence: US)
  Receive Date: 20131105
  Receipt Date: 20131105
  Transmission Date: 20140711
  Serious: No
  Sender: FDA-Public Use
  Company Number: US-BAUSCH-BL-2013-005196

PATIENT
  Age: 60 Year
  Sex: Female
  Weight: 79.9 kg

DRUGS (6)
  1. LOTEPREDNOL ETABONATE OPHTHALMIC OINTMENT 0.5% [Suspect]
     Indication: SKIN LESION
     Dosage: 1 RIBBON ON CORNER OF LEFT EYE, ONCE DAILY
     Route: 047
     Dates: start: 201305, end: 201306
  2. LOTEPREDNOL ETABONATE OPHTHALMIC OINTMENT 0.5% [Suspect]
     Dosage: 1 RIBBON ON CORNER OF LEFT EYE, TWO TIMES PER DAY
     Route: 047
     Dates: start: 201306, end: 201307
  3. LOTEPREDNOL ETABONATE OPHTHALMIC OINTMENT 0.5% [Suspect]
     Dosage: 1 RIBBON ON CORNER OF LEFT EYE, ONCE WEEKLY
     Route: 047
     Dates: start: 201307, end: 201308
  4. LOTEPREDNOL ETABONATE OPHTHALMIC OINTMENT 0.5% [Suspect]
     Dosage: 1 RIBBON ON CORNER OF LEFT EYE, TWO TIMES PER WEEK
     Route: 047
     Dates: start: 201308, end: 20130917
  5. ATIVAN [Concomitant]
  6. TYLENOL [Concomitant]

REACTIONS (2)
  - Off label use [Recovered/Resolved]
  - Pain [Recovering/Resolving]
